FAERS Safety Report 17486791 (Version 2)
Quarter: 2020Q3

REPORT INFORMATION
  Report Type: Spontaneous
  Country: US (occurrence: US)
  Receive Date: 20200303
  Receipt Date: 20200917
  Transmission Date: 20201102
  Serious: Yes (Other)
  Sender: FDA-Public Use
  Company Number: US-ASTRAZENECA-2020SE29009

PATIENT
  Age: 17440 Day
  Sex: Female

DRUGS (71)
  1. NEXIUM [Suspect]
     Active Substance: ESOMEPRAZOLE MAGNESIUM
     Indication: DYSPEPSIA
     Dosage: 40.0MG UNKNOWN
     Route: 048
     Dates: start: 2009, end: 2019
  2. ALBUTEROL. [Concomitant]
     Active Substance: ALBUTEROL
     Indication: ASTHMA
  3. LEVOTHYROXIN [Concomitant]
     Active Substance: LEVOTHYROXINE
     Indication: HYPOTHYROIDISM
     Dates: start: 2009, end: 2010
  4. HYDROCODON?ACETAMINOPHN [Concomitant]
     Dates: start: 2009, end: 2017
  5. CEFDINIR. [Concomitant]
     Active Substance: CEFDINIR
     Dates: start: 2009, end: 2017
  6. FLUCONAZOLE. [Concomitant]
     Active Substance: FLUCONAZOLE
     Dates: start: 2009, end: 2017
  7. AMIKACIN. [Concomitant]
     Active Substance: AMIKACIN
     Dates: start: 2009, end: 2017
  8. CEFEPIME [Concomitant]
     Active Substance: CEFEPIME HYDROCHLORIDE
     Dates: start: 2009, end: 2017
  9. MUCINEX [Concomitant]
     Active Substance: GUAIFENESIN
     Dates: start: 2009, end: 2017
  10. ADVAIR HFA [Concomitant]
     Active Substance: FLUTICASONE PROPIONATE\SALMETEROL XINAFOATE
     Indication: ASTHMA
  11. RANITIDINE. [Concomitant]
     Active Substance: RANITIDINE
     Dates: start: 2009, end: 2017
  12. TUMS [Concomitant]
     Active Substance: CALCIUM CARBONATE
     Dates: start: 2009, end: 2017
  13. HYDROXYZINE [Concomitant]
     Active Substance: HYDROXYZINE HYDROCHLORIDE
     Dates: start: 2009, end: 2017
  14. TRAMADOL. [Concomitant]
     Active Substance: TRAMADOL
     Dates: start: 2009, end: 2017
  15. ESTRADIOL. [Concomitant]
     Active Substance: ESTRADIOL
     Dates: start: 2009, end: 2017
  16. MUPIROCIN. [Concomitant]
     Active Substance: MUPIROCIN
     Dates: start: 2009, end: 2017
  17. OXYCODONE?ACETAMINOPHEN [Concomitant]
     Active Substance: ACETAMINOPHEN\OXYCODONE HYDROCHLORIDE
     Dates: start: 2009, end: 2017
  18. MULTIVITAMINS [Concomitant]
     Active Substance: VITAMINS
     Dates: start: 2009, end: 2017
  19. BUSPIRONE HCL [Concomitant]
     Active Substance: BUSPIRONE HYDROCHLORIDE
     Dates: start: 2009, end: 2017
  20. AMPICILLIN [Concomitant]
     Active Substance: AMPICILLIN
     Dates: start: 2009, end: 2017
  21. TRIMETH/SULFA [Concomitant]
     Dates: start: 2009, end: 2017
  22. NORTRIPTYLINE [Concomitant]
     Active Substance: NORTRIPTYLINE
     Dates: start: 2009, end: 2017
  23. FLUVIRIN NOS [Concomitant]
     Active Substance: INFLUENZA VIRUS VACCINE
     Dates: start: 2009, end: 2017
  24. SUMATRIPTAN. [Concomitant]
     Active Substance: SUMATRIPTAN
     Dates: start: 2009, end: 2017
  25. OXCARBAZEPINE. [Concomitant]
     Active Substance: OXCARBAZEPINE
     Dates: start: 2009, end: 2017
  26. PERMETHRIN. [Concomitant]
     Active Substance: PERMETHRIN
     Dates: start: 2009, end: 2017
  27. SULFAMETHOXAZOLE [Concomitant]
     Active Substance: SULFAMETHOXAZOLE
     Dates: start: 2009, end: 2017
  28. CLOBAZAM. [Concomitant]
     Active Substance: CLOBAZAM
     Dates: start: 2009, end: 2017
  29. LEVOFLOXACIN. [Concomitant]
     Active Substance: LEVOFLOXACIN
     Dates: start: 2009, end: 2017
  30. MEROPENEM. [Concomitant]
     Active Substance: MEROPENEM
     Dates: start: 2009, end: 2017
  31. OMEPRAZOLE. [Suspect]
     Active Substance: OMEPRAZOLE
     Indication: DYSPEPSIA
     Dosage: GENERIC40.0MG UNKNOWN
     Route: 065
     Dates: start: 2019
  32. TOPIRAMATE. [Concomitant]
     Active Substance: TOPIRAMATE
     Indication: SEIZURE
     Dates: start: 2009
  33. FOLIC ACID. [Concomitant]
     Active Substance: FOLIC ACID
     Indication: HYPOVITAMINOSIS
     Dates: start: 2010
  34. LEXAPRO [Concomitant]
     Active Substance: ESCITALOPRAM OXALATE
     Dates: start: 2009, end: 2017
  35. CYCLOBENZAPRINE. [Concomitant]
     Active Substance: CYCLOBENZAPRINE
     Dates: start: 2009, end: 2017
  36. TOBRAMYCIN. [Concomitant]
     Active Substance: TOBRAMYCIN
     Dates: start: 2009, end: 2017
  37. CORTICOSTEROIDS [Concomitant]
     Active Substance: CORTICOSTEROID NOS
     Dates: start: 2009, end: 2017
  38. SUDAFED [Concomitant]
     Active Substance: PSEUDOEPHEDRINE HYDROCHLORIDE
     Indication: NASAL CONGESTION
  39. NAPROXEN SODIUM. [Concomitant]
     Active Substance: NAPROXEN SODIUM
     Dates: start: 2009, end: 2017
  40. PROMETHAZINE [Concomitant]
     Active Substance: PROMETHAZINE HYDROCHLORIDE
     Dates: start: 2009, end: 2017
  41. MELOXICAM. [Concomitant]
     Active Substance: MELOXICAM
     Dates: start: 2009, end: 2017
  42. MEDROXYPROGESTERONE [Concomitant]
     Active Substance: MEDROXYPROGESTERONE
     Dates: start: 2009, end: 2017
  43. PROAIR HFA [Concomitant]
     Active Substance: ALBUTEROL SULFATE
     Dates: start: 2009, end: 2017
  44. CELEXA [Concomitant]
     Active Substance: CITALOPRAM HYDROBROMIDE
     Dates: start: 2009, end: 2017
  45. CORTISPORIN [Concomitant]
     Active Substance: BACITRACIN ZINC\HYDROCORTISONE\NEOMYCIN SULFATE\POLYMYXIN B SULFATE
     Dates: start: 2009, end: 2017
  46. PHENERGAN [Concomitant]
     Active Substance: PROMETHAZINE HYDROCHLORIDE
     Dates: start: 2009, end: 2017
  47. ZYRTEC [Concomitant]
     Active Substance: CETIRIZINE HYDROCHLORIDE
     Indication: MULTIPLE ALLERGIES
  48. CITALOPRAM [Concomitant]
     Active Substance: CITALOPRAM HYDROBROMIDE
     Dates: start: 2009, end: 2017
  49. POLYETHYLENE GLYCOL [Concomitant]
     Active Substance: POLYETHYLENE GLYCOLS
     Dates: start: 2009, end: 2017
  50. FERROUS SULFATE. [Concomitant]
     Active Substance: FERROUS SULFATE
     Dates: start: 2009, end: 2017
  51. SMZ/TMP [Concomitant]
     Active Substance: SULFAMETHOXAZOLE\TRIMETHOPRIM
     Dates: start: 2009, end: 2017
  52. TREXIMET [Concomitant]
     Active Substance: NAPROXEN SODIUM\SUMATRIPTAN SUCCINATE
     Dates: start: 2009, end: 2017
  53. BENADRYL [Concomitant]
     Active Substance: DIPHENHYDRAMINE HYDROCHLORIDE
     Dates: start: 2009, end: 2017
  54. ALPRAZOLAM. [Concomitant]
     Active Substance: ALPRAZOLAM
  55. CETIRIZINE [Concomitant]
     Active Substance: CETIRIZINE HYDROCHLORIDE
     Dates: start: 2009, end: 2017
  56. IBUPROFEN. [Concomitant]
     Active Substance: IBUPROFEN
     Dates: start: 2009, end: 2017
  57. AMP/ SULBACTAM [Concomitant]
     Dates: start: 2009, end: 2017
  58. CEFTAZIDIME. [Concomitant]
     Active Substance: CEFTAZIDIME
     Dates: start: 2009, end: 2017
  59. GENTAMICIN. [Concomitant]
     Active Substance: GENTAMICIN
     Dates: start: 2009, end: 2017
  60. IMIPENEM [Concomitant]
     Active Substance: IMIPENEM
     Dates: start: 2009, end: 2017
  61. PREDNISONE. [Concomitant]
     Active Substance: PREDNISONE
     Dates: start: 2009, end: 2017
  62. VISTARIL [Concomitant]
     Active Substance: HYDROXYZINE PAMOATE
     Dates: start: 2009, end: 2017
  63. VITAMIN [Concomitant]
     Active Substance: VITAMINS
     Indication: INAPPROPRIATE SCHEDULE OF PRODUCT ADMINISTRATION
  64. TYLENOL [Concomitant]
     Active Substance: ACETAMINOPHEN
     Indication: BACK PAIN
  65. FAMOTIDINE. [Concomitant]
     Active Substance: FAMOTIDINE
     Dates: start: 2019
  66. AMITIZA [Concomitant]
     Active Substance: LUBIPROSTONE
     Dates: start: 2009, end: 2017
  67. CLOTRIMAZOLE. [Concomitant]
     Active Substance: CLOTRIMAZOLE
     Dates: start: 2009, end: 2017
  68. CLONAZEPAM. [Concomitant]
     Active Substance: CLONAZEPAM
     Dates: start: 2009, end: 2017
  69. NITROFURANTOIN. [Concomitant]
     Active Substance: NITROFURANTOIN
     Dates: start: 2009, end: 2017
  70. PHENAZOPYRID [Concomitant]
     Dates: start: 2009, end: 2017
  71. SUDOGEST [Concomitant]
     Active Substance: PSEUDOEPHEDRINE HYDROCHLORIDE
     Dates: start: 2009, end: 2017

REACTIONS (1)
  - Chronic kidney disease [Not Recovered/Not Resolved]

NARRATIVE: CASE EVENT DATE: 20190712
